FAERS Safety Report 7955680-0 (Version None)
Quarter: 2011Q4

REPORT INFORMATION
  Report Type: 
  Country: None (occurrence: None)
  Receive Date: 20111204
  Receipt Date: 20111027
  Transmission Date: 20120403
  Serious: No
  Sender: FDA-Public Use
  Company Number: US-ALLERGAN-1114182US

PATIENT
  Age: 30 Year
  Sex: Female
  Weight: 52.154 kg

DRUGS (1)
  1. ACZONE [Suspect]
     Indication: ACNE
     Dosage: UNK
     Route: 061
     Dates: start: 20110701, end: 20111001

REACTIONS (1)
  - DRUG INEFFECTIVE [None]
